FAERS Safety Report 12100075 (Version 1)
Quarter: 2016Q1

REPORT INFORMATION
  Report Type: Report from Study
  Country: US (occurrence: US)
  Receive Date: 20160222
  Receipt Date: 20160222
  Transmission Date: 20160526
  Serious: Yes (Other)
  Sender: FDA-Public Use
  Company Number: US-PFIZER INC-2016090189

PATIENT

DRUGS (3)
  1. SIROLIMUS. [Suspect]
     Active Substance: SIROLIMUS
     Dosage: 2 MG, DAILY
     Route: 048
  2. SIROLIMUS. [Suspect]
     Active Substance: SIROLIMUS
     Indication: GLIOBLASTOMA
     Dosage: 10 MG, DAILY (LOADING DOSE)
     Route: 048
  3. VANDETANIB. [Suspect]
     Active Substance: VANDETANIB
     Indication: GLIOBLASTOMA
     Dosage: 200 MG, DAILY
     Route: 048

REACTIONS (5)
  - Lymphopenia [Unknown]
  - Platelet count decreased [Unknown]
  - Leukopenia [Unknown]
  - Fatigue [Unknown]
  - Hypophosphataemia [Unknown]
